FAERS Safety Report 15834860 (Version 2)
Quarter: 2019Q1

REPORT INFORMATION
  Report Type: Spontaneous
  Country: US (occurrence: US)
  Receive Date: 20190116
  Receipt Date: 20190124
  Transmission Date: 20190417
  Serious: No
  Sender: FDA-Public Use
  Company Number: US-PFIZER INC-2019018116

PATIENT
  Age: 67 Year
  Sex: Female

DRUGS (1)
  1. XELJANZ XR [Suspect]
     Active Substance: TOFACITINIB CITRATE
     Dosage: 11 MG, UNK
     Dates: start: 201812

REACTIONS (5)
  - Joint range of motion decreased [Unknown]
  - Arthralgia [Unknown]
  - Stomatitis [Unknown]
  - Diarrhoea [Unknown]
  - Pain in extremity [Unknown]
